FAERS Safety Report 6986039-0 (Version None)
Quarter: 2010Q3

REPORT INFORMATION
  Report Type: 
  Country: None (occurrence: None)
  Receive Date: 20100910
  Receipt Date: 20100830
  Transmission Date: 20110219
  Serious: Yes (Death)
  Sender: FDA-Public Use
  Company Number: A-US2010-39405

PATIENT
  Age: 76 Year
  Sex: Male

DRUGS (3)
  1. TRACLEER [Suspect]
     Indication: PULMONARY ARTERIAL HYPERTENSION
     Dosage: UNK ORAL
     Route: 048
     Dates: start: 20091102
  2. REVATIO [Concomitant]
  3. COUMADIN [Concomitant]

REACTIONS (2)
  - COLON CANCER [None]
  - RENAL CANCER [None]
